FAERS Safety Report 8355185-1 (Version None)
Quarter: 2012Q2

REPORT INFORMATION
  Report Type: 
  Country: None (occurrence: None)
  Receive Date: 20120511
  Receipt Date: 20110509
  Transmission Date: 20120825
  Serious: No
  Sender: FDA-Public Use
  Company Number: US-TEVA-2011002302

PATIENT
  Age: 54 Year
  Sex: Female
  Weight: 95.34 kg

DRUGS (7)
  1. DIGOXIN [Concomitant]
  2. REQUIP [Concomitant]
  3. PROVIGIL [Suspect]
     Indication: NARCOLEPSY
     Route: 048
     Dates: start: 20110401, end: 20110401
  4. NUVIGIL [Suspect]
     Indication: NARCOLEPSY
     Route: 048
     Dates: start: 20110505, end: 20110508
  5. CARVEDILOL [Concomitant]
  6. DIOVAN [Concomitant]
  7. SPIRONOLACTONE [Concomitant]

REACTIONS (1)
  - PARAESTHESIA ORAL [None]
